FAERS Safety Report 19629362 (Version 4)
Quarter: 2022Q1

REPORT INFORMATION
  Report Type: Spontaneous
  Country: US (occurrence: US)
  Receive Date: 20210729
  Receipt Date: 20220202
  Transmission Date: 20220423
  Serious: Yes (Hospitalization, Other)
  Sender: FDA-Public Use
  Company Number: US-CELGENE-USA-20210706276

PATIENT
  Age: 75 Year
  Sex: Male

DRUGS (46)
  1. AZACITIDINE [Suspect]
     Active Substance: AZACITIDINE
     Indication: Acute myeloid leukaemia
     Route: 041
     Dates: start: 20210226
  2. AMBISOME [Suspect]
     Active Substance: AMPHOTERICIN B
     Indication: Neutropenic sepsis
     Dosage: 297 MILLIGRAM
     Route: 041
     Dates: start: 20210427, end: 20210427
  3. AMBISOME [Suspect]
     Active Substance: AMPHOTERICIN B
     Indication: Cough
     Dosage: 300 MILLIGRAM
     Route: 041
     Dates: start: 20210428, end: 20210501
  4. AMBISOME [Suspect]
     Active Substance: AMPHOTERICIN B
     Dosage: 300 MILLIGRAM
     Route: 041
     Dates: start: 20210504, end: 20210504
  5. PEVONEDISTAT [Suspect]
     Active Substance: PEVONEDISTAT
     Indication: Acute myeloid leukaemia
     Route: 041
     Dates: start: 20210226
  6. VENETOCLAX [Suspect]
     Active Substance: VENETOCLAX
     Indication: Acute myeloid leukaemia
     Route: 048
     Dates: start: 20210226
  7. GUAIFENESIN [Concomitant]
     Active Substance: GUAIFENESIN
     Indication: Cough
     Route: 065
     Dates: start: 20210429, end: 20210429
  8. ACYCLOVIR [Concomitant]
     Active Substance: ACYCLOVIR
     Indication: Antiviral prophylaxis
     Route: 065
     Dates: start: 20210212
  9. LORAZEPAM [Concomitant]
     Active Substance: LORAZEPAM
     Indication: Anxiety
     Route: 065
     Dates: start: 20210213
  10. LEVAQUIN [Concomitant]
     Active Substance: LEVOFLOXACIN
     Indication: Product used for unknown indication
     Route: 065
     Dates: start: 20210420, end: 20210421
  11. ZOFRAN [Concomitant]
     Active Substance: ONDANSETRON HYDROCHLORIDE
     Indication: Product used for unknown indication
     Route: 065
     Dates: start: 20210419, end: 20210419
  12. METOPROLOL SUCCINATE [Concomitant]
     Active Substance: METOPROLOL SUCCINATE
     Indication: Acute left ventricular failure
     Route: 065
     Dates: start: 20210222
  13. METHYLPREDNISOLONE SODIUM SUCCINATE [Concomitant]
     Active Substance: METHYLPREDNISOLONE SODIUM SUCCINATE
     Indication: Product used for unknown indication
     Route: 065
     Dates: start: 20210421, end: 20210519
  14. DIPHENHYDRAMINE HYDROCHLORIDE [Concomitant]
     Active Substance: DIPHENHYDRAMINE HYDROCHLORIDE
     Indication: Transfusion
     Route: 065
     Dates: start: 20210421, end: 20210519
  15. ACETAMINOPHEN [Concomitant]
     Active Substance: ACETAMINOPHEN
     Indication: Transfusion
     Route: 065
     Dates: start: 20210421, end: 20210519
  16. POLYETHYLENE GLYCOLS [Concomitant]
     Active Substance: POLYETHYLENE GLYCOLS
     Indication: Constipation
     Route: 065
     Dates: start: 20210427, end: 20210501
  17. SENNA LEAF [Concomitant]
     Active Substance: SENNA LEAF
     Indication: Constipation
     Route: 065
     Dates: start: 20210504, end: 20210506
  18. IPRATROPIUM BROMIDE [Concomitant]
     Active Substance: IPRATROPIUM BROMIDE
     Indication: Cough
     Route: 065
     Dates: start: 20210430
  19. ALBUTEROL SULFATE [Concomitant]
     Active Substance: ALBUTEROL SULFATE
     Indication: Cough
     Route: 065
     Dates: start: 20210430
  20. BENZONATATE [Concomitant]
     Active Substance: BENZONATATE
     Indication: Cough
     Route: 065
     Dates: start: 20210429, end: 20210430
  21. BENZONATATE [Concomitant]
     Active Substance: BENZONATATE
     Route: 065
     Dates: start: 20210504, end: 20210616
  22. METRONIDAZOLE [Concomitant]
     Active Substance: METRONIDAZOLE
     Indication: Enterocolitis infectious
     Route: 065
     Dates: start: 20210503, end: 20210503
  23. AUGMENTIN [Concomitant]
     Active Substance: AMOXICILLIN\CLAVULANATE POTASSIUM
     Indication: Febrile neutropenia
     Route: 065
     Dates: start: 20210421, end: 20210503
  24. SIMETHICONE (DIMETHICONE) [Concomitant]
     Active Substance: DIMETHICONE
     Indication: Gastrooesophageal reflux disease
     Route: 065
     Dates: start: 20210425, end: 20210425
  25. POTASSIUM CHLORIDE [Concomitant]
     Active Substance: POTASSIUM CHLORIDE
     Indication: Hypokalaemia
     Route: 065
     Dates: start: 20210430, end: 20210529
  26. POTASSIUM ACETATE [Concomitant]
     Active Substance: POTASSIUM ACETATE
     Indication: Hypokalaemia
     Route: 065
     Dates: start: 20210502, end: 20210502
  27. MAGNESIUM SULFATE [Concomitant]
     Active Substance: MAGNESIUM SULFATE
     Indication: Hypomagnesaemia
     Route: 065
     Dates: start: 20210428, end: 20210504
  28. MAGNESIUM OXIDE [Concomitant]
     Active Substance: MAGNESIUM OXIDE
     Indication: Hypomagnesaemia
     Route: 065
     Dates: start: 20210504, end: 20210504
  29. LEVOFLOXACIN [Concomitant]
     Active Substance: LEVOFLOXACIN
     Indication: Infection prophylaxis
     Route: 065
     Dates: start: 20210420, end: 20210421
  30. LEVOFLOXACIN [Concomitant]
     Active Substance: LEVOFLOXACIN
     Route: 065
     Dates: start: 20210421, end: 20210504
  31. POVIDONE-IODINE [Concomitant]
     Active Substance: POVIDONE-IODINE
     Indication: Infection prophylaxis
     Route: 065
     Dates: start: 20210503, end: 20210520
  32. MELATONIN [Concomitant]
     Active Substance: MELATONIN
     Indication: Insomnia
     Route: 065
     Dates: start: 20210216
  33. GILTERITINIB [Concomitant]
     Active Substance: GILTERITINIB
     Indication: Leukaemia
     Route: 065
     Dates: start: 20210504, end: 20210504
  34. ONDANSETRON HYDROCHLORIDE [Concomitant]
     Active Substance: ONDANSETRON HYDROCHLORIDE
     Indication: Nausea
     Route: 065
     Dates: start: 20210424, end: 20210427
  35. ONDANSETRON HYDROCHLORIDE [Concomitant]
     Active Substance: ONDANSETRON HYDROCHLORIDE
     Indication: Prophylaxis of nausea and vomiting
     Route: 065
     Dates: start: 20210419, end: 20210419
  36. PROCHLORPERAZINE [Concomitant]
     Active Substance: PROCHLORPERAZINE
     Indication: Nausea
     Route: 065
     Dates: start: 20210501, end: 20210501
  37. FUROSEMIDE SODIUM [Concomitant]
     Active Substance: FUROSEMIDE SODIUM
     Indication: Neutropenic sepsis
     Route: 065
     Dates: start: 20210430, end: 20210430
  38. CEFEPIME [Concomitant]
     Active Substance: CEFEPIME HYDROCHLORIDE
     Indication: Neutropenic sepsis
     Route: 065
     Dates: start: 20210423, end: 20210423
  39. FUROSEMIDE [Concomitant]
     Active Substance: FUROSEMIDE
     Indication: Neutropenic sepsis
     Route: 065
     Dates: start: 20210429, end: 20210503
  40. VANCOMYCIN HYDROCHLORIDE [Concomitant]
     Active Substance: VANCOMYCIN HYDROCHLORIDE
     Indication: Neutropenic sepsis
     Route: 065
     Dates: start: 20210423, end: 20210519
  41. VANCOMYCIN HYDROCHLORIDE [Concomitant]
     Active Substance: VANCOMYCIN HYDROCHLORIDE
     Indication: Enterocolitis infectious
  42. MORPHINE [Concomitant]
     Active Substance: MORPHINE
     Indication: Pain prophylaxis
     Route: 065
     Dates: start: 20210427, end: 20210427
  43. MIDAZOLAM HYDROCHLORIDE [Concomitant]
     Active Substance: MIDAZOLAM HYDROCHLORIDE
     Indication: Prophylaxis
     Route: 065
     Dates: start: 20210427, end: 20210427
  44. FENTANYL CITRATE [Concomitant]
     Active Substance: FENTANYL CITRATE
     Indication: Sedative therapy
     Route: 065
     Dates: start: 20210427, end: 20210427
  45. CHOLECALCIFEROL [Concomitant]
     Active Substance: CHOLECALCIFEROL
     Indication: Vitamin D deficiency
     Route: 065
     Dates: start: 20210219
  46. LOSARTAN [Concomitant]
     Active Substance: LOSARTAN
     Indication: Hypertension
     Route: 065
     Dates: start: 20210212, end: 20210519

REACTIONS (1)
  - Acute kidney injury [Recovered/Resolved]

NARRATIVE: CASE EVENT DATE: 20210519
